FAERS Safety Report 13999648 (Version 1)
Quarter: 2017Q3

REPORT INFORMATION
  Report Type: Report from Study
  Country: US (occurrence: US)
  Receive Date: 20170922
  Receipt Date: 20170922
  Transmission Date: 20171128
  Serious: Yes (Other)
  Sender: FDA-Public Use
  Company Number: US-ROCHE-1992388

PATIENT
  Age: 60 Year
  Sex: Male
  Weight: 142.1 kg

DRUGS (25)
  1. FLUTICASON [Concomitant]
     Active Substance: FLUTICASONE
     Route: 045
  2. FUROSEMIDE. [Concomitant]
     Active Substance: FUROSEMIDE
     Dosage: 1 TAB DAILY AND HALF A TAB IN EVENING
     Route: 048
  3. GABAPENTIN. [Concomitant]
     Active Substance: GABAPENTIN
     Route: 048
  4. BREO ELLIPTA [Concomitant]
     Active Substance: FLUTICASONE FUROATE\VILANTEROL TRIFENATATE
     Route: 065
  5. SPIRIVA [Concomitant]
     Active Substance: TIOTROPIUM BROMIDE MONOHYDRATE
     Route: 055
  6. THEOPHYLLINE [Concomitant]
     Active Substance: THEOPHYLLINE ANHYDROUS
     Route: 048
  7. VALSARTAN. [Concomitant]
     Active Substance: VALSARTAN
     Route: 048
  8. CITALOPRAM [Concomitant]
     Active Substance: CITALOPRAM HYDROBROMIDE
     Route: 048
  9. MELOXICAM. [Concomitant]
     Active Substance: MELOXICAM
     Route: 065
  10. OMEPRAZOLE. [Concomitant]
     Active Substance: OMEPRAZOLE
     Route: 048
  11. QUINIDINE [Concomitant]
     Active Substance: QUINIDINE
     Route: 048
  12. FISH OIL [Concomitant]
     Active Substance: FISH OIL
     Dosage: 1 TAB
     Route: 048
  13. RANITIDINE. [Concomitant]
     Active Substance: RANITIDINE
     Route: 065
  14. ASA [Concomitant]
     Active Substance: ASPIRIN
     Route: 048
  15. ATENOLOL. [Concomitant]
     Active Substance: ATENOLOL
     Route: 048
  16. CRESTOR [Concomitant]
     Active Substance: ROSUVASTATIN CALCIUM
     Route: 048
  17. METFORMIN [Concomitant]
     Active Substance: METFORMIN HYDROCHLORIDE
     Route: 048
  18. ESBRIET [Suspect]
     Active Substance: PIRFENIDONE
     Indication: IDIOPATHIC PULMONARY FIBROSIS
     Dosage: ONE CAPSULE THREE TIMES PER DAY ;ONGOING: NO
     Route: 048
     Dates: start: 20170901, end: 201709
  19. CARTIA (UNITED STATES) [Concomitant]
     Route: 048
  20. MUCINEX [Concomitant]
     Active Substance: GUAIFENESIN
     Route: 048
  21. ALLOPURINOL. [Concomitant]
     Active Substance: ALLOPURINOL
     Indication: GOUT
     Route: 048
  22. AZITHROMYCIN ANHYDROUS. [Concomitant]
     Active Substance: AZITHROMYCIN ANHYDROUS
     Indication: PNEUMONIA
     Route: 048
  23. FOLIC ACID. [Concomitant]
     Active Substance: FOLIC ACID
     Route: 048
  24. LEVOTHYROXIN [Concomitant]
     Active Substance: LEVOTHYROXINE
     Dosage: 25 MCG 1 PILL EARLY MORNING ON EMPTY STOMACH
     Route: 048
  25. VITAMIN B12 [Concomitant]
     Active Substance: CYANOCOBALAMIN
     Route: 048

REACTIONS (3)
  - Fatigue [Recovered/Resolved]
  - Gastrooesophageal reflux disease [Recovered/Resolved]
  - Haemorrhage [Recovered/Resolved]

NARRATIVE: CASE EVENT DATE: 20170902
